FAERS Safety Report 9717440 (Version 1)
Quarter: 2013Q4

REPORT INFORMATION
  Report Type: Spontaneous
  Country: US (occurrence: US)
  Receive Date: 20131127
  Receipt Date: 20131127
  Transmission Date: 20140711
  Serious: No
  Sender: FDA-Public Use
  Company Number: US-GILEAD-2009-0019696

PATIENT
  Age: 58 Year
  Sex: Female
  Weight: 65.77 kg

DRUGS (10)
  1. LETAIRIS [Suspect]
     Indication: PULMONARY HYPERTENSION
     Route: 048
  2. REVATIO [Concomitant]
  3. LASIX [Concomitant]
  4. SPIRONOLACTONE [Concomitant]
  5. NADOLOL [Concomitant]
  6. LOMOTIL [Concomitant]
  7. BENTYL [Concomitant]
  8. OMEPRAZOLE [Concomitant]
  9. LACTAID [Concomitant]
  10. ALLEGRA [Concomitant]

REACTIONS (2)
  - Local swelling [Recovered/Resolved with Sequelae]
  - Oedema [Recovered/Resolved with Sequelae]
